FAERS Safety Report 15173241 (Version 1)
Quarter: 2018Q3

REPORT INFORMATION
  Report Type: Spontaneous
  Country: JP (occurrence: JP)
  Receive Date: 20180720
  Receipt Date: 20180720
  Transmission Date: 20181010
  Serious: Yes (Other)
  Sender: FDA-Public Use
  Company Number: PHHY2018JP044254

PATIENT
  Age: 52 Year
  Sex: Female

DRUGS (5)
  1. PACLITAXEL. [Suspect]
     Active Substance: PACLITAXEL
     Dosage: 135 MG/M2, UNK
     Route: 065
  2. CARBOPLATIN. [Suspect]
     Active Substance: CARBOPLATIN
     Indication: SQUAMOUS CELL CARCINOMA OF THE CERVIX
     Route: 065
  3. BEVACIZUMAB. [Suspect]
     Active Substance: BEVACIZUMAB
     Indication: SQUAMOUS CELL CARCINOMA OF THE CERVIX
     Dosage: 15 MG/KG, UNK
     Route: 065
  4. CISPLATIN. [Suspect]
     Active Substance: CISPLATIN
     Indication: SQUAMOUS CELL CARCINOMA OF THE CERVIX
     Dosage: 50 MG/M2, UNK
     Route: 065
  5. PACLITAXEL. [Suspect]
     Active Substance: PACLITAXEL
     Indication: SQUAMOUS CELL CARCINOMA OF THE CERVIX
     Route: 065

REACTIONS (19)
  - Leukopenia [Unknown]
  - Diarrhoea [Unknown]
  - Thrombocytopenia [Unknown]
  - Proteinuria [Unknown]
  - Fatigue [Unknown]
  - Nausea [Unknown]
  - Metastases to lymph nodes [Unknown]
  - Myalgia [Unknown]
  - Metastases to liver [Unknown]
  - Gastrointestinal perforation [Unknown]
  - Peripheral sensory neuropathy [Unknown]
  - Hypertension [Unknown]
  - Neutropenia [Unknown]
  - Metastases to central nervous system [Unknown]
  - Vomiting [Unknown]
  - Treatment failure [Unknown]
  - Fistula [Unknown]
  - Anaemia [Unknown]
  - Mucosal inflammation [Unknown]

NARRATIVE: CASE EVENT DATE: 201304
